FAERS Safety Report 10762221 (Version 1)
Quarter: 2015Q1

REPORT INFORMATION
  Report Type: Spontaneous
  Country: US (occurrence: None)
  Receive Date: 20150128
  Receipt Date: 20150128
  Transmission Date: 20150721
  Serious: Yes (Hospitalization)
  Sender: FDA-Public Use
  Company Number: 1379538

PATIENT
  Age: 16 Year
  Sex: Female

DRUGS (8)
  1. IVIG (GLOBULIN, IMMUNE) [Concomitant]
  2. SOLU-MEDROL [Concomitant]
     Active Substance: METHYLPREDNISOLONE SODIUM SUCCINATE
  3. METHOTREXATE (METHOTREXATE) [Concomitant]
     Active Substance: METHOTREXATE
  4. TRAMADOL [Concomitant]
     Active Substance: TRAMADOL
  5. RITUXIMAB (RITUXIMAB) [Suspect]
     Active Substance: RITUXIMAB
     Indication: POLYMYOSITIS
     Dosage: (1000 MG, 1 IN 2 WK)
     Route: 042
     Dates: start: 20140314
  6. LEUCOVORIN (CALCIUM FOLINATE) [Concomitant]
     Active Substance: LEUCOVORIN
  7. PREDNISONE. [Concomitant]
     Active Substance: PREDNISONE
  8. PLAQUENIL (HYDROXYCHLOROQUINE SULFATE) [Concomitant]

REACTIONS (1)
  - Cardiac failure congestive [None]

NARRATIVE: CASE EVENT DATE: 20140330
